FAERS Safety Report 5415566-2 (Version None)
Quarter: 2007Q3

REPORT INFORMATION
  Report Type: 
  Country: None (occurrence: None)
  Receive Date: 20070815
  Receipt Date: 20070806
  Transmission Date: 20080115
  Serious: Yes (Hospitalization)
  Sender: FDA-Public Use
  Company Number: US-KINGPHARMUSA00001-K200700990

PATIENT

DRUGS (2)
  1. ALTACE [Suspect]
     Indication: HYPERTENSION
     Dosage: 10 MG, QD
     Route: 048
  2. METOPROLOL SUCCINATE [Concomitant]

REACTIONS (8)
  - BLOOD CREATININE ABNORMAL [None]
  - C-REACTIVE PROTEIN INCREASED [None]
  - DIARRHOEA [None]
  - FLUID INTAKE REDUCED [None]
  - GASTROENTERITIS VIRAL [None]
  - NEPHROPATHY TOXIC [None]
  - PYREXIA [None]
  - VOMITING [None]
